FAERS Safety Report 7055241-4 (Version None)
Quarter: 2010Q4

REPORT INFORMATION
  Report Type: 
  Country: None (occurrence: None)
  Receive Date: 20101021
  Receipt Date: 20101008
  Transmission Date: 20110411
  Serious: Yes (Other)
  Sender: FDA-Public Use
  Company Number: PHFR2010IE01649

PATIENT
  Sex: Female

DRUGS (1)
  1. CLOZARIL [Suspect]
     Indication: SCHIZOPHRENIA
     Dosage: 50 MG
     Route: 048
     Dates: start: 20030522

REACTIONS (2)
  - HAEMOGLOBIN INCREASED [None]
  - PLATELET COUNT DECREASED [None]
